FAERS Safety Report 9468336 (Version 1)
Quarter: 2013Q3

REPORT INFORMATION
  Report Type: Spontaneous
  Country: US (occurrence: US)
  Receive Date: 20130821
  Receipt Date: 20130821
  Transmission Date: 20140515
  Serious: No
  Sender: FDA-Public Use
  Company Number: US-PFIZER INC-2013240711

PATIENT
  Age: 37 Year
  Sex: Female

DRUGS (1)
  1. ADVIL CONGESTION RELIEF [Suspect]
     Dosage: UNK

REACTIONS (5)
  - Nasal congestion [Unknown]
  - Pain [Unknown]
  - Somnolence [Unknown]
  - Poor quality sleep [Unknown]
  - Therapeutic response unexpected [Unknown]
